FAERS Safety Report 13694743 (Version 1)
Quarter: 2017Q2

REPORT INFORMATION
  Report Type: Spontaneous
  Country: US (occurrence: US)
  Receive Date: 20170627
  Receipt Date: 20170627
  Transmission Date: 20170830
  Serious: No
  Sender: FDA-Public Use
  Company Number: GXBR2017US001340

PATIENT
  Age: 54 Year
  Sex: Female

DRUGS (1)
  1. BIMATOPROST. [Suspect]
     Active Substance: BIMATOPROST
     Indication: MADAROSIS
     Dosage: UNK DF, QHS
     Route: 065
     Dates: start: 20170404, end: 20170404

REACTIONS (4)
  - Eye pruritus [Recovered/Resolved]
  - Ocular hyperaemia [Recovered/Resolved]
  - Ocular discomfort [Unknown]
  - Middle insomnia [Recovered/Resolved]

NARRATIVE: CASE EVENT DATE: 20170405
